FAERS Safety Report 9353534 (Version 1)
Quarter: 2013Q2

REPORT INFORMATION
  Report Type: Spontaneous
  Country: US (occurrence: None)
  Receive Date: 20130617
  Receipt Date: 20130617
  Transmission Date: 20140414
  Serious: Yes (Other)
  Sender: FDA-Public Use
  Company Number: None

PATIENT
  Age: 75 Year
  Sex: Female

DRUGS (1)
  1. XELODA [Suspect]
     Route: 048
     Dates: start: 20130523

REACTIONS (3)
  - Diarrhoea [None]
  - Vomiting [None]
  - Somnolence [None]
